FAERS Safety Report 14730292 (Version 2)
Quarter: 2018Q2

REPORT INFORMATION
  Report Type: Spontaneous
  Country: US (occurrence: US)
  Receive Date: 20180406
  Receipt Date: 20180503
  Transmission Date: 20180711
  Serious: Yes (Death, Hospitalization, Other)
  Sender: FDA-Public Use
  Company Number: US-PFIZER INC-2018137431

PATIENT
  Age: 73 Year
  Sex: Female

DRUGS (2)
  1. GABAPENTIN. [Suspect]
     Active Substance: GABAPENTIN
     Indication: HYPOTONIA
     Dosage: UNK
  2. PERCOCET [Concomitant]
     Active Substance: ACETAMINOPHEN\OXYCODONE HYDROCHLORIDE
     Dosage: UNK

REACTIONS (8)
  - Pain [Unknown]
  - Lung neoplasm malignant [Fatal]
  - Fall [Unknown]
  - Hip fracture [Unknown]
  - Muscle spasms [Unknown]
  - Pain in extremity [Unknown]
  - Muscular weakness [Unknown]
  - Clavicle fracture [Unknown]

NARRATIVE: CASE EVENT DATE: 2011
